FAERS Safety Report 6750843-4 (Version None)
Quarter: 2010Q2

REPORT INFORMATION
  Report Type: 
  Country: None (occurrence: None)
  Receive Date: 20100602
  Receipt Date: 20100514
  Transmission Date: 20101027
  Serious: Yes (Death, Hospitalization, Other)
  Sender: FDA-Public Use
  Company Number: US-BAYER-200935227NA

PATIENT
  Age: 26 Year
  Sex: Female
  Weight: 97 kg

DRUGS (5)
  1. YASMIN [Suspect]
     Indication: DRUG USE FOR UNKNOWN INDICATION
     Route: 048
     Dates: start: 20050701, end: 20051001
  2. ALBUTEROL [Concomitant]
  3. BUSPAR [Concomitant]
  4. PAXIL [Concomitant]
  5. XANAX [Concomitant]

REACTIONS (12)
  - ATRIOVENTRICULAR BLOCK COMPLETE [None]
  - CYANOSIS [None]
  - DEEP VEIN THROMBOSIS [None]
  - DYSPNOEA [None]
  - DYSPNOEA EXERTIONAL [None]
  - ERYTHEMA [None]
  - LIMB DISCOMFORT [None]
  - OXYGEN SATURATION DECREASED [None]
  - PULMONARY EMBOLISM [None]
  - STRESS [None]
  - TACHYCARDIA [None]
  - TACHYPNOEA [None]
